FAERS Safety Report 5321338-X (Version None)
Quarter: 2007Q2

REPORT INFORMATION
  Report Type: 
  Country: None (occurrence: None)
  Receive Date: 20070507
  Receipt Date: 20070507
  Transmission Date: 20071010
  Serious: No
  Sender: FDA-Public Use
  Company Number: None

PATIENT
  Age: 52 Year
  Sex: Male
  Weight: 79.3795 kg

DRUGS (2)
  1. DEPAKOTE [Suspect]
     Dosage: 500 AM AND HS PO
     Route: 048
     Dates: start: 20060321, end: 20060418
  2. DEPAKOTE [Suspect]
     Dosage: 250 3PM PO
     Route: 048

REACTIONS (2)
  - BLOOD AMYLASE INCREASED [None]
  - VOMITING [None]
